FAERS Safety Report 21494276 (Version 2)
Quarter: 2023Q1

REPORT INFORMATION
  Report Type: Spontaneous
  Country: BR (occurrence: BR)
  Receive Date: 20221021
  Receipt Date: 20230120
  Transmission Date: 20230417
  Serious: Yes (Disabling)
  Sender: FDA-Public Use
  Company Number: BR-BoehringerIngelheim-2022-BI-198650

PATIENT
  Age: 79 Year
  Sex: Male

DRUGS (3)
  1. CLONIDINE [Suspect]
     Active Substance: CLONIDINE
     Indication: Hypertension
     Route: 048
  2. CLONIDINE [Suspect]
     Active Substance: CLONIDINE
     Route: 048
  3. CLONIDINE [Suspect]
     Active Substance: CLONIDINE
     Route: 048

REACTIONS (4)
  - Lip scab [Recovered/Resolved]
  - Gastrointestinal disorder [Recovered/Resolved]
  - Dry mouth [Recovered/Resolved]
  - Drug ineffective [Recovered/Resolved]
